FAERS Safety Report 5975678-1 (Version None)
Quarter: 2008Q4

REPORT INFORMATION
  Report Type: 
  Country: None (occurrence: None)
  Receive Date: 20081202
  Receipt Date: 20081125
  Transmission Date: 20090506
  Serious: Yes (Other)
  Sender: FDA-Public Use
  Company Number: PHHY2008BR29784

PATIENT
  Age: 60 Year
  Sex: Female
  Weight: 60 kg

DRUGS (5)
  1. TEGRETOL [Suspect]
     Indication: PETIT MAL EPILEPSY
     Dosage: 200 MG, UNK
     Dates: start: 19980101
  2. TEGRETOL [Suspect]
     Dosage: 1300 MG/DAY
  3. TEGRETOL [Suspect]
     Dosage: 400 MG, 1 TABLET EVERY 8 HOURS
     Route: 048
  4. PHENOBARBITAL TAB [Concomitant]
     Dosage: 50 MG, Q8H
  5. DEPAKOTE [Concomitant]
     Indication: PETIT MAL EPILEPSY
     Dosage: 500 MG, TWO TABLETS DAILY

REACTIONS (7)
  - BALANCE DISORDER [None]
  - DIPLOPIA [None]
  - DIZZINESS [None]
  - DRUG INEFFECTIVE [None]
  - MUSCULAR WEAKNESS [None]
  - PETIT MAL EPILEPSY [None]
  - SOMNOLENCE [None]
